FAERS Safety Report 5195775-0 (Version None)
Quarter: 2006Q4

REPORT INFORMATION
  Report Type: 
  Country: None (occurrence: None)
  Receive Date: 20061227
  Receipt Date: 20061227
  Transmission Date: 20070319
  Serious: No
  Sender: FDA-Public Use
  Company Number: None

PATIENT
  Sex: Female
  Weight: 19.64 kg

DRUGS (2)
  1. CYTARABINE [Suspect]
     Dosage: 70 MG
  2. METHOTREXATE [Suspect]
     Dosage: 12 MG

REACTIONS (15)
  - ABDOMINAL DISTENSION [None]
  - CARDIO-RESPIRATORY ARREST [None]
  - CEREBRAL FUNGAL INFECTION [None]
  - FAECALOMA [None]
  - GALLBLADDER OEDEMA [None]
  - HEPATIC LESION [None]
  - HYPOTENSION [None]
  - HYPOVENTILATION [None]
  - INTESTINAL PERFORATION [None]
  - NEUTROPENIA [None]
  - PNEUMATOSIS [None]
  - SEPSIS [None]
  - SEPTIC EMBOLUS [None]
  - SEPTIC SHOCK [None]
  - SPLENIC INFARCTION [None]
